FAERS Safety Report 24170992 (Version 1)
Quarter: 2024Q3

REPORT INFORMATION
  Report Type: Spontaneous
  Country: US (occurrence: US)
  Receive Date: 20240805
  Receipt Date: 20240805
  Transmission Date: 20241016
  Serious: Yes (Other)
  Sender: ADMA BIOLOGICS
  Company Number: US-ADMA BIOLOGICS INC.-US-2024ADM000102

PATIENT
  Age: 53 Year
  Sex: Male

DRUGS (1)
  1. HUMAN IMMUNOGLOBULIN G [Suspect]
     Active Substance: HUMAN IMMUNOGLOBULIN G
     Indication: Diplegia
     Dosage: UNK, UNK
     Route: 042

REACTIONS (6)
  - Seminoma [Recovered/Resolved]
  - Cerebellar atrophy [Unknown]
  - Cervical spondylotic amyotrophy [Unknown]
  - Ataxia [Unknown]
  - Meningitis aseptic [Unknown]
  - Off label use [Unknown]
